FAERS Safety Report 5140250-2 (Version None)
Quarter: 2006Q4

REPORT INFORMATION
  Report Type: 
  Country: None (occurrence: None)
  Receive Date: 20061025
  Receipt Date: 20061013
  Transmission Date: 20070319
  Serious: Yes (Hospitalization, Other)
  Sender: FDA-Public Use
  Company Number: 2006BH013694

PATIENT
  Age: 46 Year
  Sex: Male

DRUGS (2)
  1. DIANEAL [Suspect]
     Indication: RENAL FAILURE CHRONIC
     Dosage: SEE IMAGE
     Route: 033
     Dates: start: 20060927
  2. NORVASC [Concomitant]

REACTIONS (1)
  - PERICARDITIS [None]
